FAERS Safety Report 25099807 (Version 1)
Quarter: 2025Q1

REPORT INFORMATION
  Report Type: Spontaneous
  Country: CH (occurrence: CH)
  Receive Date: 20250320
  Receipt Date: 20250320
  Transmission Date: 20250409
  Serious: Yes (Hospitalization, Other)
  Sender: MYLAN
  Company Number: None

PATIENT
  Age: 52 Year
  Sex: Female

DRUGS (12)
  1. XANAX [Interacting]
     Active Substance: ALPRAZOLAM
     Indication: Product used for unknown indication
     Dates: start: 20250214, end: 20250214
  2. FLURAZEPAM HYDROCHLORIDE [Interacting]
     Active Substance: FLURAZEPAM HYDROCHLORIDE
     Indication: Product used for unknown indication
     Dates: start: 20250214, end: 20250214
  3. QUETIAPINE FUMARATE [Interacting]
     Active Substance: QUETIAPINE FUMARATE
     Indication: Product used for unknown indication
     Dates: start: 20211216, end: 20240916
  4. QUETIAPINE FUMARATE [Interacting]
     Active Substance: QUETIAPINE FUMARATE
     Dosage: 150 MILLIGRAM, QD (150 MG 1 TABLET AT BEDTIME)
     Dates: start: 20240917
  5. SEROQUEL [Interacting]
     Active Substance: QUETIAPINE FUMARATE
     Indication: Product used for unknown indication
     Dates: start: 20211216, end: 20250123
  6. SEROQUEL [Interacting]
     Active Substance: QUETIAPINE FUMARATE
     Dosage: 100 MILLIGRAM, QD (100 MG 1 TABLET IN THE EVENING)
     Dates: start: 20250124
  7. VENLAFAXINE HYDROCHLORIDE [Interacting]
     Active Substance: VENLAFAXINE HYDROCHLORIDE
     Indication: Product used for unknown indication
     Dates: start: 20211216, end: 20240916
  8. VENLAFAXINE HYDROCHLORIDE [Interacting]
     Active Substance: VENLAFAXINE HYDROCHLORIDE
     Dosage: 75 MILLIGRAM, QD (75 MG IN THE MORNING)
     Dates: start: 20240917
  9. XANAX [Concomitant]
     Active Substance: ALPRAZOLAM
  10. XANAX [Concomitant]
     Active Substance: ALPRAZOLAM
     Dosage: 0.5 MILLIGRAM, BID (1 MG, ? TABLET IN THE MORNING, ? TABLET AT MIDDAY)
     Dates: start: 20250127
  11. XANAX [Concomitant]
     Active Substance: ALPRAZOLAM
  12. FLURAZEPAM HYDROCHLORIDE [Concomitant]
     Active Substance: FLURAZEPAM HYDROCHLORIDE
     Dosage: 15 MILLIGRAM, QD (15 MG 1 TABLET IN THE EVENING)
     Dates: start: 20240925

REACTIONS (3)
  - Altered state of consciousness [Recovered/Resolved]
  - Hyperlactacidaemia [Recovered/Resolved]
  - Drug interaction [Recovered/Resolved]

NARRATIVE: CASE EVENT DATE: 20250214
